FAERS Safety Report 18551349 (Version 2)
Quarter: 2020Q4

REPORT INFORMATION
  Report Type: Spontaneous
  Country: US (occurrence: US)
  Receive Date: 20201126
  Receipt Date: 20201209
  Transmission Date: 20210114
  Serious: Yes (Other)
  Sender: FDA-Public Use
  Company Number: US-PFIZER INC-2020468539

PATIENT
  Age: 47 Year
  Sex: Female

DRUGS (2)
  1. CYCLOPHOSPHAMIDE. [Concomitant]
     Active Substance: CYCLOPHOSPHAMIDE
     Indication: INVASIVE LOBULAR BREAST CARCINOMA
     Dosage: 1360 MG, CYCLIC
     Route: 042
     Dates: start: 20160311, end: 201606
  2. DOCETAXEL. [Suspect]
     Active Substance: DOCETAXEL
     Indication: INVASIVE LOBULAR BREAST CARCINOMA
     Dosage: 160 MG, CYCLIC
     Route: 042
     Dates: start: 20160311, end: 201606

REACTIONS (2)
  - Dacryostenosis acquired [Unknown]
  - Eye injury [Unknown]

NARRATIVE: CASE EVENT DATE: 20200602
